FAERS Safety Report 7352698-6 (Version None)
Quarter: 2011Q1

REPORT INFORMATION
  Report Type: 
  Country: None (occurrence: None)
  Receive Date: 20110310
  Receipt Date: 20110310
  Transmission Date: 20110831
  Serious: Yes (Hospitalization)
  Sender: FDA-Public Use
  Company Number: None

PATIENT
  Sex: Female

DRUGS (9)
  1. CARBOPLATIN [Suspect]
     Indication: SMALL CELL LUNG CANCER STAGE UNSPECIFIED
     Dosage: 240 MG Q 3 WEEKS IV
     Route: 042
     Dates: start: 20110228, end: 20110228
  2. NORVASC [Concomitant]
  3. FORADIL [Concomitant]
  4. ACIPHEXI [Concomitant]
  5. POTASSIUM CHLORIDE [Concomitant]
  6. MAGNESIUM OXIDE [Concomitant]
  7. SPIRIVA [Concomitant]
  8. ETOPOSIDE [Suspect]
     Indication: SMALL CELL LUNG CANCER STAGE UNSPECIFIED
     Dosage: 141 MG IV
     Route: 042
     Dates: start: 20110228, end: 20110301
  9. CALCIUM GLUCONATE [Concomitant]

REACTIONS (3)
  - ANAEMIA [None]
  - DYSPNOEA [None]
  - ELECTROLYTE IMBALANCE [None]
